FAERS Safety Report 5833397-6 (Version None)
Quarter: 2008Q3

REPORT INFORMATION
  Report Type: 
  Country: None (occurrence: None)
  Receive Date: 20080805
  Receipt Date: 20080725
  Transmission Date: 20090109
  Serious: Yes (Hospitalization, Disabling, Other)
  Sender: FDA-Public Use
  Company Number: IT-ELI_LILLY_AND_COMPANY-IT200806001657

PATIENT
  Sex: Female

DRUGS (3)
  1. GEMZAR [Suspect]
     Indication: LUNG NEOPLASM MALIGNANT
     Dosage: 1280 MG TOTAL, UNKNOWN
     Route: 042
     Dates: start: 20080130, end: 20080429
  2. CARBOPLATIN [Concomitant]
     Indication: LUNG NEOPLASM MALIGNANT
     Dosage: 350 MG TOTAL, UNKNOWN
     Route: 065
  3. ZOLEDRONIC ACID [Concomitant]
     Dosage: UNK, UNKNOWN
     Route: 042

REACTIONS (5)
  - ATRIAL FIBRILLATION [None]
  - CAPILLARY LEAK SYNDROME [None]
  - ERYTHEMA [None]
  - RENAL FAILURE ACUTE [None]
  - THROMBOCYTOPENIA [None]
